FAERS Safety Report 21870713 (Version 1)
Quarter: 2023Q1

REPORT INFORMATION
  Report Type: Spontaneous
  Country: FR (occurrence: FR)
  Receive Date: 20230117
  Receipt Date: 20230117
  Transmission Date: 20230418
  Serious: Yes (Hospitalization, Other)
  Sender: FDA-Public Use
  Company Number: None

PATIENT
  Age: 55 Year
  Sex: Male
  Weight: 50 kg

DRUGS (6)
  1. LOVENOX [Suspect]
     Active Substance: ENOXAPARIN SODIUM
     Indication: Peripheral ischaemia
     Dosage: 0.6 ML: QD
     Route: 030
     Dates: start: 20221209, end: 20221214
  2. ILOPROST [Suspect]
     Active Substance: ILOPROST
     Indication: Peripheral ischaemia
     Dosage: 25.01 UG, QD (I.E. 0.5 ML/H 25.01 UG: QD)
     Route: 042
     Dates: start: 20221212, end: 20221214
  3. ALBUTEROL SULFATE [Concomitant]
     Active Substance: ALBUTEROL SULFATE
     Dosage: UNK
  4. PIPERACILLIN [Concomitant]
     Active Substance: PIPERACILLIN
     Dosage: UNK
  5. METHADONE HYDROCHLORIDE [Concomitant]
     Active Substance: METHADONE HYDROCHLORIDE
     Dosage: UNK
  6. TAZOBACTAM [Concomitant]
     Active Substance: TAZOBACTAM

REACTIONS (1)
  - Ulcer haemorrhage [Recovering/Resolving]

NARRATIVE: CASE EVENT DATE: 20221214
